FAERS Safety Report 7878635-3 (Version None)
Quarter: 2011Q4

REPORT INFORMATION
  Report Type: 
  Country: None (occurrence: None)
  Receive Date: 20111018
  Receipt Date: 20110104
  Transmission Date: 20120403
  Serious: Yes (Hospitalization)
  Sender: FDA-Public Use
  Company Number: 2011P1003759

PATIENT
  Age: 60 Year
  Sex: Male
  Weight: 75.7507 kg

DRUGS (4)
  1. FENTANYL [Suspect]
     Indication: THROAT CANCER
     Dosage: 1 PATCH;Q72H;TDER 25 MCG
     Route: 062
     Dates: start: 20100101, end: 20100101
  2. FENTANYL [Suspect]
     Indication: THROAT CANCER
     Dosage: 1 PATCH;Q72H;TDER
     Route: 062
     Dates: start: 20100101
  3. OXYCODONE HCL [Concomitant]
  4. FENTANYL [Suspect]
     Indication: THROAT CANCER
     Dosage: 1 PATCH;Q72H;TDER 100 MCG
     Route: 062

REACTIONS (2)
  - DRUG WITHDRAWAL SYNDROME [None]
  - DRUG EFFECT DECREASED [None]
